FAERS Safety Report 8303518 (Version 2)
Quarter: 2013Q2

REPORT INFORMATION
  Report Type: Report from Study
  Country: VE (occurrence: VE)
  Receive Date: 20111220
  Receipt Date: 20130521
  Transmission Date: 20140414
  Serious: Yes (Hospitalization, Other)
  Sender: FDA-Public Use
  Company Number: PHHY2011VE110028

PATIENT
  Age: 71 Year
  Sex: Female

DRUGS (11)
  1. ACLASTA [Suspect]
     Indication: OSTEOPOROSIS
     Dosage: 5 MG/ML
     Route: 042
     Dates: start: 2010
  2. ACLASTA [Suspect]
     Dosage: 5 MG/ML
     Route: 042
     Dates: start: 201107
  3. LIBRAX [Concomitant]
     Indication: ABDOMINAL PAIN
     Dosage: 1 DF (5 / 2.5MG), QD
  4. TRIMEBUTINE MALEATE [Concomitant]
     Dosage: 300 MG, BID
  5. UNASYN [Concomitant]
     Dosage: UNK UKN, UNK
  6. ASPIRINE [Concomitant]
     Dosage: 100 MG, QD
  7. ENALAPRIL [Concomitant]
     Indication: HYPERTENSION
     Dosage: 20 MG, UNK
     Route: 048
     Dates: end: 2012
  8. CATAPRESAN//CLONIDINE [Concomitant]
     Indication: HYPERTENSION
     Dosage: 0.150 MG, UNK
     Route: 048
     Dates: start: 2012
  9. CORASPIRINA [Concomitant]
     Dosage: 81 MG, UNK
     Route: 048
  10. VALSARTAN [Concomitant]
     Indication: HYPERTENSION
     Dosage: 160 MG, UNK
     Route: 048
     Dates: start: 2012
  11. DI-EUDRIN [Concomitant]
     Indication: DIURETIC THERAPY
     Dosage: 50 MG, UNK
     Route: 048
     Dates: start: 2012

REACTIONS (7)
  - Colon adenoma [Recovered/Resolved]
  - Procedural pain [Recovered/Resolved]
  - Haemoglobin decreased [Recovered/Resolved]
  - Diverticulum [Recovered/Resolved]
  - Constipation [Recovered/Resolved]
  - Abdominal pain [Recovered/Resolved]
  - Diverticulitis [Recovered/Resolved]
